FAERS Safety Report 15488750 (Version 3)
Quarter: 2023Q1

REPORT INFORMATION
  Report Type: Other
  Country: IT (occurrence: IT)
  Receive Date: 20181011
  Receipt Date: 20230228
  Transmission Date: 20230417
  Serious: Yes (Life-Threatening, Hospitalization, Other)
  Sender: FDA-Public Use
  Company Number: IT-MACLEODS PHARMACEUTICALS US LTD-MAC2018009461

PATIENT

DRUGS (11)
  1. LEVOFLOXACIN [Suspect]
     Active Substance: LEVOFLOXACIN
     Indication: Pneumonia legionella
     Dosage: 750 MG, QD, INTRAVENOUS INFUSION
     Route: 042
  2. LEVOFLOXACIN [Suspect]
     Active Substance: LEVOFLOXACIN
     Dosage: 1500 MG, QD, INTRAVENOUS INFUSION
     Route: 042
  3. AMOXICILLIN\CLAVULANATE POTASSIUM [Suspect]
     Active Substance: AMOXICILLIN\CLAVULANATE POTASSIUM
     Indication: Asthenia
     Dosage: UNK
     Route: 048
  4. AMOXICILLIN\CLAVULANATE POTASSIUM [Suspect]
     Active Substance: AMOXICILLIN\CLAVULANATE POTASSIUM
     Indication: Headache
  5. AMOXICILLIN\CLAVULANATE POTASSIUM [Suspect]
     Active Substance: AMOXICILLIN\CLAVULANATE POTASSIUM
     Indication: Hyperpyrexia
  6. CLARITHROMYCIN [Suspect]
     Active Substance: CLARITHROMYCIN
     Indication: Lung consolidation
     Dosage: 1 G, QD
     Route: 048
  7. FLUCONAZOLE [Suspect]
     Active Substance: FLUCONAZOLE
     Indication: Pneumonia legionella
     Dosage: 800 MG, QD
     Route: 042
  8. RIFAMPIN [Suspect]
     Active Substance: RIFAMPIN
     Indication: Pneumonia legionella
     Dosage: 900 MG, QD
     Route: 065
  9. PIPERACILLIN SODIUM\TAZOBACTAM SODIUM [Suspect]
     Active Substance: PIPERACILLIN SODIUM\TAZOBACTAM SODIUM
     Indication: Prophylaxis
     Dosage: 13.5 G, QD
     Route: 042
  10. PIPERACILLIN SODIUM\TAZOBACTAM SODIUM [Suspect]
     Active Substance: PIPERACILLIN SODIUM\TAZOBACTAM SODIUM
     Indication: Lung consolidation
     Dosage: 13.5 G, QD
     Route: 042
  11. TAZOBACTAM [Suspect]
     Active Substance: TAZOBACTAM
     Indication: Lung consolidation
     Dosage: 13.5 GRAM, QD
     Route: 042

REACTIONS (19)
  - Eosinophilic pneumonia acute [Recovered/Resolved]
  - Eosinophil count increased [Recovered/Resolved]
  - Acute respiratory distress syndrome [Recovered/Resolved]
  - Respiratory distress [Recovered/Resolved]
  - Muscle fatigue [Recovered/Resolved]
  - PO2 decreased [Recovered/Resolved]
  - Oxygen saturation decreased [Recovered/Resolved]
  - Fatigue [Unknown]
  - Blood pH increased [Recovered/Resolved]
  - PCO2 decreased [Recovered/Resolved]
  - Pleural effusion [Recovered/Resolved]
  - Lung consolidation [Recovered/Resolved]
  - Pneumothorax [Recovered/Resolved]
  - Lymphocyte count decreased [Recovered/Resolved]
  - Neutrophil count decreased [Recovered/Resolved]
  - CD4/CD8 ratio decreased [Recovered/Resolved]
  - Pneumonia legionella [Recovered/Resolved]
  - Eosinophilia [Recovered/Resolved]
  - Drug ineffective [Unknown]
